FAERS Safety Report 25434917 (Version 1)
Quarter: 2025Q2

REPORT INFORMATION
  Report Type: Spontaneous
  Country: ES (occurrence: ES)
  Receive Date: 20250613
  Receipt Date: 20250613
  Transmission Date: 20250717
  Serious: Yes (Hospitalization)
  Sender: VERTEX
  Company Number: ES-VERTEX PHARMACEUTICALS-2025-009474

PATIENT
  Sex: Male

DRUGS (1)
  1. ELEXACAFTOR\IVACAFTOR\TEZACAFTOR [Suspect]
     Active Substance: ELEXACAFTOR\IVACAFTOR\TEZACAFTOR
     Indication: Cystic fibrosis
     Route: 048

REACTIONS (4)
  - Gastrointestinal haemorrhage [Unknown]
  - Varices oesophageal [Unknown]
  - Off label use [Unknown]
  - Pulmonary function test decreased [Not Recovered/Not Resolved]
